FAERS Safety Report 7973002-6 (Version None)
Quarter: 2011Q4

REPORT INFORMATION
  Report Type: 
  Country: None (occurrence: None)
  Receive Date: 20111213
  Receipt Date: 20111130
  Transmission Date: 20120403
  Serious: Yes (Other)
  Sender: FDA-Public Use
  Company Number: JP-PFIZER INC-2011301883

PATIENT
  Age: 73 Year
  Sex: Female

DRUGS (2)
  1. LIPITOR [Suspect]
     Dosage: 5 MG DAILY
     Route: 048
  2. ZITHROMAX [Concomitant]
     Dosage: UNK

REACTIONS (1)
  - ANOSMIA [None]
